FAERS Safety Report 12338041 (Version 1)
Quarter: 2016Q2

REPORT INFORMATION
  Report Type: Spontaneous
  Country: US (occurrence: US)
  Receive Date: 20160505
  Receipt Date: 20160505
  Transmission Date: 20160815
  Serious: Yes (Hospitalization)
  Sender: FDA-Public Use
  Company Number: US-MYLANLABS-2016M1018357

PATIENT

DRUGS (2)
  1. FLUOROURACIL. [Suspect]
     Active Substance: FLUOROURACIL
     Indication: NEOPLASM MALIGNANT
     Route: 042
  2. MITOMYCIN. [Concomitant]
     Active Substance: MITOMYCIN
     Indication: NEOPLASM MALIGNANT
     Route: 065

REACTIONS (4)
  - Cardiotoxicity [Recovered/Resolved]
  - Myocarditis [Recovered/Resolved]
  - Myocardial infarction [Recovered/Resolved]
  - Cardiogenic shock [Recovered/Resolved]
